FAERS Safety Report 5676429-0 (Version None)
Quarter: 2008Q1

REPORT INFORMATION
  Report Type: 
  Country: None (occurrence: None)
  Receive Date: 20080321
  Receipt Date: 20080312
  Transmission Date: 20080703
  Serious: Yes (Other)
  Sender: FDA-Public Use
  Company Number: US-PFIZER INC-2008024423

PATIENT
  Sex: Female
  Weight: 90.7 kg

DRUGS (13)
  1. LYRICA [Suspect]
     Indication: FIBROMYALGIA
     Route: 048
     Dates: start: 20070101, end: 20080101
  2. CITALOPRAM HYDROBROMIDE [Concomitant]
  3. LODINE [Concomitant]
  4. ELAVIL [Concomitant]
  5. FLEXERIL [Concomitant]
  6. FOSAMAX [Concomitant]
  7. NEXIUM [Concomitant]
  8. LISINOPRIL [Concomitant]
  9. NIFEDIPINE [Concomitant]
  10. CALCIUM CARBONATE [Concomitant]
  11. ASPIRIN [Concomitant]
  12. CALCIUM [Concomitant]
  13. MIRALAX [Concomitant]

REACTIONS (2)
  - HALLUCINATION [None]
  - HOMICIDAL IDEATION [None]
